FAERS Safety Report 10225523 (Version 1)
Quarter: 2014Q1

REPORT INFORMATION
  Report Type: Spontaneous
  Country: US (occurrence: None)
  Receive Date: 20140306
  Receipt Date: 20140306
  Transmission Date: 20141002
  Serious: Yes (Other)
  Sender: FDA-Public Use
  Company Number: 163-21880-13113114

PATIENT
  Age: 65 Year
  Sex: Female
  Weight: 60.8 kg

DRUGS (1)
  1. REVLIMID [Suspect]
     Indication: PLASMA CELL MYELOMA
     Dosage: 10 MG, 28 IN 28 D, PO
     Route: 048
     Dates: start: 20121019

REACTIONS (3)
  - Hypersensitivity [None]
  - Sinus disorder [None]
  - Dyspnoea [None]
